FAERS Safety Report 20160443 (Version 3)
Quarter: 2022Q1

REPORT INFORMATION
  Report Type: Report from Study
  Country: CN (occurrence: CN)
  Receive Date: 20211208
  Receipt Date: 20220203
  Transmission Date: 20220423
  Serious: Yes (Death, Hospitalization)
  Sender: FDA-Public Use
  Company Number: CN-PHARMACOVIGILANCE-CN-KAD-21-00142

PATIENT

DRUGS (11)
  1. BELUMOSUDIL MESYLATE [Suspect]
     Active Substance: BELUMOSUDIL MESYLATE
     Dosage: 200 MILLIGRAM, QD
     Route: 048
     Dates: start: 20211104
  2. AMLODIPINE BESYLATE [Concomitant]
     Active Substance: AMLODIPINE BESYLATE
     Indication: Hypertension
     Dosage: 5 MILLIGRAM, QD
     Route: 048
     Dates: start: 20210802
  3. MYCOPHENOLATE SODIUM [Concomitant]
     Active Substance: MYCOPHENOLATE SODIUM
     Indication: Chronic graft versus host disease
     Dosage: 360 MILLIGRAM, BID
     Route: 048
     Dates: start: 20210802
  4. MONTELUKAST SODIUM [Concomitant]
     Active Substance: MONTELUKAST SODIUM
     Indication: Chronic graft versus host disease
     Dosage: 10 MILLIGRAM, QD
     Route: 048
     Dates: start: 20210802
  5. AZITHROMYCIN [Concomitant]
     Active Substance: AZITHROMYCIN
     Indication: Chronic graft versus host disease
     Dosage: 0.25 MILLIGRAM, QD
     Route: 048
     Dates: start: 20211109, end: 20211111
  6. SIROLIMUS [Concomitant]
     Active Substance: SIROLIMUS
     Indication: Chronic graft versus host disease
     Dosage: 1 MILLIGRAM, QD
     Route: 048
     Dates: start: 20210924
  7. METHYLPREDNISOLONE [Concomitant]
     Active Substance: METHYLPREDNISOLONE
     Indication: Chronic graft versus host disease
     Dosage: 12 MILLIGRAM, QD
     Route: 048
     Dates: start: 20211001
  8. MOXIFLOXACIN HYDROCHLORIDE [Concomitant]
     Active Substance: MOXIFLOXACIN HYDROCHLORIDE
     Indication: Urogenital infection fungal
     Dosage: 0.4 MILLIGRAM, QD
     Route: 048
     Dates: start: 20211101, end: 20211103
  9. LEVOFLOXACIN [Concomitant]
     Active Substance: LEVOFLOXACIN
     Indication: Chronic graft versus host disease
     Dosage: 0.05 MILLILITER, TID
     Dates: start: 20211111
  10. FAROPENEM SODIUM [Concomitant]
     Active Substance: FAROPENEM SODIUM
     Indication: Urinary tract infection
     Dosage: 0.2 GRAM, BID
     Route: 048
     Dates: start: 20211104
  11. BICYCLOL [Concomitant]
     Active Substance: BICYCLOL
     Indication: Hepatobiliary disorder prophylaxis
     Dosage: 50 MILLIGRAM, TID
     Dates: start: 20211111

REACTIONS (1)
  - Pneumonia [Fatal]

NARRATIVE: CASE EVENT DATE: 20211111
